FAERS Safety Report 4752346-5 (Version None)
Quarter: 2005Q3

REPORT INFORMATION
  Report Type: 
  Country: None (occurrence: None)
  Receive Date: 20050825
  Receipt Date: 20050719
  Transmission Date: 20060218
  Serious: Yes (Hospitalization)
  Sender: FDA-Public Use
  Company Number: DE-GLAXOSMITHKLINE-D0047118A

PATIENT
  Age: 67 Year
  Sex: Male

DRUGS (1)
  1. LAMICTAL [Suspect]
     Route: 048

REACTIONS (4)
  - COGNITIVE DISORDER [None]
  - GLIOBLASTOMA [None]
  - OEDEMA [None]
  - SPEECH DISORDER [None]
